FAERS Safety Report 4736369-8 (Version None)
Quarter: 2005Q3

REPORT INFORMATION
  Report Type: 
  Country: None (occurrence: None)
  Receive Date: 20050803
  Receipt Date: 20050719
  Transmission Date: 20060218
  Serious: Yes (Hospitalization)
  Sender: FDA-Public Use
  Company Number: 200507IM000323

PATIENT
  Age: 50 Year
  Sex: Female

DRUGS (9)
  1. INFERGEN [Suspect]
     Indication: HEPATITIS C
     Dosage: 15 UG;QD; SUBCUTANEOUS
     Route: 058
     Dates: start: 20050422, end: 20050424
  2. INFERGEN [Suspect]
     Indication: HEPATITIS C
     Dosage: 15 UG;QD; SUBCUTANEOUS
     Route: 058
     Dates: start: 20050401, end: 20050707
  3. RIBAVIRIN [Concomitant]
  4. DIOVAN [Concomitant]
  5. LEXAPRO [Concomitant]
  6. PROPOXY [Concomitant]
  7. PREVACID [Concomitant]
  8. OMEPRAZOLE [Concomitant]
  9. PHENERGAN [Concomitant]

REACTIONS (7)
  - DEHYDRATION [None]
  - FATIGUE [None]
  - HYPERSOMNIA [None]
  - PANCREATITIS [None]
  - PLATELET COUNT DECREASED [None]
  - SKIN DISCOLOURATION [None]
  - WHITE BLOOD CELL COUNT DECREASED [None]
